FAERS Safety Report 11791271 (Version 2)
Quarter: 2016Q1

REPORT INFORMATION
  Report Type: Spontaneous
  Country: US (occurrence: US)
  Receive Date: 20151201
  Receipt Date: 20160115
  Transmission Date: 20160525
  Serious: No
  Sender: FDA-Public Use
  Company Number: US-GLAXOSMITHKLINE-US2015GSK163967

PATIENT
  Sex: Female

DRUGS (6)
  1. DIGOXIN. [Concomitant]
     Active Substance: DIGOXIN
  2. PROVENTIL HFA [Concomitant]
     Active Substance: ALBUTEROL SULFATE
  3. RYTHMOL SR [Suspect]
     Active Substance: PROPAFENONE HYDROCHLORIDE
     Indication: ATRIAL SEPTAL DEFECT
     Dosage: 225 MG, BID
  4. PROPAFENONE HYDROCHLORIDE SR [Suspect]
     Active Substance: PROPAFENONE HYDROCHLORIDE
     Indication: ATRIAL SEPTAL DEFECT
  5. PROPAFENONE TABLET [Suspect]
     Active Substance: PROPAFENONE
     Indication: CARDIAC DISORDER
     Dosage: 150 MG, UNK
     Dates: start: 20140411
  6. PROPAFENONE TABLET [Suspect]
     Active Substance: PROPAFENONE
     Indication: ATRIAL SEPTAL DEFECT

REACTIONS (6)
  - Gait disturbance [Unknown]
  - Osteoporosis [Unknown]
  - Tinnitus [Unknown]
  - Palpitations [Unknown]
  - Expired product administered [Unknown]
  - Influenza [Recovering/Resolving]

NARRATIVE: CASE EVENT DATE: 2005
